FAERS Safety Report 16770392 (Version 2)
Quarter: 2019Q3

REPORT INFORMATION
  Report Type: Report from Study
  Country: US (occurrence: US)
  Receive Date: 20190904
  Receipt Date: 20190905
  Transmission Date: 20191005
  Serious: Yes (Hospitalization, Other)
  Sender: FDA-Public Use
  Company Number: US-GILEAD-2019-0422938

PATIENT
  Age: 71 Year
  Sex: Female
  Weight: 49.43 kg

DRUGS (5)
  1. AMBRISENTAN [Suspect]
     Active Substance: AMBRISENTAN
     Indication: PULMONARY HYPERTENSION
     Dosage: 5 MG, QD
     Route: 048
     Dates: start: 20190227, end: 20190808
  2. ATORVASTATIN [Concomitant]
     Active Substance: ATORVASTATIN
  3. SILDENAFIL. [Concomitant]
     Active Substance: SILDENAFIL
  4. VERAPAMIL [Concomitant]
     Active Substance: VERAPAMIL HYDROCHLORIDE
  5. LASIX [Concomitant]
     Active Substance: FUROSEMIDE

REACTIONS (2)
  - Pleural effusion [Recovered/Resolved]
  - Pulmonary oedema [Recovered/Resolved]

NARRATIVE: CASE EVENT DATE: 20190803
